FAERS Safety Report 8801432 (Version 1)
Quarter: 2012Q4

REPORT INFORMATION
  Report Type: 
  Country: US (occurrence: US)
  Receive Date: 20120921
  Receipt Date: 20120921
  Transmission Date: 20130627
  Serious: Yes (Hospitalization)
  Sender: FDA-Public Use
  Company Number: US-BAYER-2012-097361

PATIENT
  Age: 50 Year
  Sex: Female
  Weight: 79 kg

DRUGS (6)
  1. BEYAZ [Suspect]
     Dosage: 1 UNK, UNK
  2. YAZ [Suspect]
  3. YASMIN [Suspect]
  4. METOPROLOL SUCCINATE [Concomitant]
     Indication: PALPITATIONS
     Dosage: 25 to 50 mg daily, UNK
     Dates: start: 20041018, end: 20120213
  5. METOPROLOL SUCCINATE [Concomitant]
     Indication: TACHYCARDIA
  6. VENLAFAXINE [Concomitant]
     Dosage: 75 mg,daily UNK
     Dates: start: 20091230, end: 20120213

REACTIONS (1)
  - Deep vein thrombosis [None]
